FAERS Safety Report 5171351-0 (Version None)
Quarter: 2006Q4

REPORT INFORMATION
  Report Type: 
  Country: None (occurrence: None)
  Receive Date: 20061213
  Receipt Date: 20061030
  Transmission Date: 20070319
  Serious: Yes (Hospitalization)
  Sender: FDA-Public Use
  Company Number: US-AMGEN-STX198821

PATIENT
  Sex: Female

DRUGS (2)
  1. ENBREL [Suspect]
     Indication: RHEUMATOID ARTHRITIS
     Route: 058
     Dates: start: 20020601
  2. METHOTREXATE [Concomitant]
     Dates: start: 20010501

REACTIONS (4)
  - OSTEOARTHRITIS [None]
  - OSTEOMYELITIS CHRONIC [None]
  - STAPHYLOCOCCAL INFECTION [None]
  - SYNOVITIS [None]
